FAERS Safety Report 10192761 (Version 1)
Quarter: 2014Q2

REPORT INFORMATION
  Report Type: Report from Study
  Country: ES (occurrence: ES)
  Receive Date: 20140523
  Receipt Date: 20140523
  Transmission Date: 20141212
  Serious: Yes (Death, Other)
  Sender: FDA-Public Use
  Company Number: ES-BAXTER-2014BAX026472

PATIENT
  Sex: 0

DRUGS (3)
  1. GENOXAL 1 G INYECTABLE [Suspect]
     Indication: B-CELL LYMPHOMA
  2. FLUDARABINE [Suspect]
     Indication: B-CELL LYMPHOMA
  3. RITUXIMAB [Suspect]
     Indication: B-CELL LYMPHOMA

REACTIONS (2)
  - Diverticulitis [Unknown]
  - Large intestine perforation [Fatal]
